FAERS Safety Report 8008075-8 (Version None)
Quarter: 2011Q4

REPORT INFORMATION
  Report Type: 
  Country: None (occurrence: None)
  Receive Date: 20111227
  Receipt Date: 20111221
  Transmission Date: 20120403
  Serious: Yes (Death)
  Sender: FDA-Public Use
  Company Number: PHHY2011AR111846

PATIENT
  Sex: Male

DRUGS (1)
  1. EXELON [Suspect]
     Indication: AMNESIA
     Dosage: 9.5 MG\25H
     Route: 062

REACTIONS (2)
  - SPINAL CORD NEOPLASM [None]
  - NEOPLASM [None]
